FAERS Safety Report 5801979-3 (Version None)
Quarter: 2008Q3

REPORT INFORMATION
  Report Type: 
  Country: None (occurrence: None)
  Receive Date: 20080707
  Receipt Date: 20080703
  Transmission Date: 20090109
  Serious: Yes (Life-Threatening, Hospitalization)
  Sender: FDA-Public Use
  Company Number: CH-ASTRAZENECA-2008PK01396

PATIENT
  Age: 24 Year
  Sex: Female

DRUGS (5)
  1. SEROQUEL [Suspect]
     Route: 048
     Dates: start: 20080521, end: 20080521
  2. QUILONORM RETARD [Suspect]
     Route: 048
     Dates: start: 20080521, end: 20080521
  3. IMOVANE [Suspect]
     Route: 048
     Dates: start: 20080521, end: 20080521
  4. DEMETRIN [Suspect]
     Route: 048
     Dates: start: 20080521, end: 20080521
  5. CYMBALTA [Suspect]
     Route: 048

REACTIONS (10)
  - ALTERED STATE OF CONSCIOUSNESS [None]
  - CEREBELLAR SYNDROME [None]
  - ELECTROCARDIOGRAM QT PROLONGED [None]
  - ELECTROCARDIOGRAM T WAVE INVERSION [None]
  - HYPERREFLEXIA [None]
  - INTENTIONAL OVERDOSE [None]
  - NEPHROGENIC DIABETES INSIPIDUS [None]
  - NEUROLOGICAL SYMPTOM [None]
  - SUICIDE ATTEMPT [None]
  - TREMOR [None]
